FAERS Safety Report 9137407 (Version 1)
Quarter: 2013Q1

REPORT INFORMATION
  Report Type: Spontaneous
  Country: US (occurrence: US)
  Receive Date: 20130304
  Receipt Date: 20130304
  Transmission Date: 20140127
  Serious: No
  Sender: FDA-Public Use
  Company Number: US-ENDO PHARMACEUTICALS INC.-PERC20100124

PATIENT
  Sex: Male

DRUGS (2)
  1. PERCOCET [Suspect]
     Indication: PAIN
     Dosage: 1/2 TO ONE TAB
     Route: 048
  2. AMBIEN [Suspect]
     Indication: INSOMNIA
     Dosage: 10 MG
     Route: 048

REACTIONS (2)
  - Loss of consciousness [Recovered/Resolved]
  - Medication error [Recovered/Resolved]
